FAERS Safety Report 15456276 (Version 1)
Quarter: 2018Q4

REPORT INFORMATION
  Report Type: Spontaneous
  Country: AU (occurrence: AU)
  Receive Date: 20181002
  Receipt Date: 20181002
  Transmission Date: 20190204
  Serious: Yes (Other)
  Sender: FDA-Public Use
  Company Number: AU-009507513-1809AUS012860

PATIENT
  Age: 41 Year
  Sex: Female

DRUGS (3)
  1. ELOCON [Suspect]
     Active Substance: MOMETASONE FUROATE
  2. ADVANTAN [Suspect]
     Active Substance: METHYLPREDNISOLONE ACEPONATE
     Dosage: 11 APPLICATION DAILY. DAILY.
     Dates: start: 2000, end: 2014
  3. DIPROSONE [Suspect]
     Active Substance: BETAMETHASONE DIPROPIONATE

REACTIONS (2)
  - Steroid withdrawal syndrome [Recovered/Resolved with Sequelae]
  - Alopecia [Recovered/Resolved with Sequelae]

NARRATIVE: CASE EVENT DATE: 2005
